FAERS Safety Report 11374283 (Version 2)
Quarter: 2017Q2

REPORT INFORMATION
  Report Type: Spontaneous
  Country: GB (occurrence: GB)
  Receive Date: 20150804
  Receipt Date: 20170601
  Transmission Date: 20170829
  Serious: Yes (Other)
  Sender: FDA-Public Use
  Company Number: GB-SEPTODONT-201402329

PATIENT
  Age: 27 Year
  Sex: Male

DRUGS (4)
  1. LIGNOCAINE [Concomitant]
     Active Substance: LIDOCAINE HYDROCHLORIDE
     Indication: LOCAL ANAESTHESIA
     Dosage: UNKNOWN DOSE
     Route: 061
  2. ARTICAINE WITH EPINEPHRINE 1:100,000 [Suspect]
     Active Substance: ARTICAINE HYDROCHLORIDE\EPINEPHRINE HYDROCHLORIDE
     Indication: LOCAL ANAESTHESIA
     Dosage: UNKNOWN DOSE
     Route: 004
  3. COLGATE DURAPHAT [Suspect]
     Active Substance: SODIUM FLUORIDE
     Indication: DENTAL CARIES
     Route: 061
     Dates: start: 20140127, end: 20140128
  4. MELATONIN [Concomitant]
     Active Substance: MELATONIN
     Dosage: UNKNOWN DOSE

REACTIONS (12)
  - Swelling face [Unknown]
  - Malaise [Unknown]
  - Gingivitis [Unknown]
  - Swollen tongue [Recovered/Resolved with Sequelae]
  - Pyrexia [Unknown]
  - Lip swelling [Recovered/Resolved with Sequelae]
  - Gingival pain [Unknown]
  - Hypersensitivity [Unknown]
  - Lip ulceration [Recovered/Resolved with Sequelae]
  - Tongue ulceration [Recovered/Resolved with Sequelae]
  - Chills [Unknown]
  - Mouth ulceration [Recovered/Resolved with Sequelae]

NARRATIVE: CASE EVENT DATE: 20140128
